FAERS Safety Report 5626902-6 (Version None)
Quarter: 2008Q1

REPORT INFORMATION
  Report Type: 
  Country: None (occurrence: None)
  Receive Date: 20080212
  Receipt Date: 20080131
  Transmission Date: 20080703
  Serious: Yes (Other)
  Sender: FDA-Public Use
  Company Number: GXKR2008DK01334

PATIENT
  Sex: Male

DRUGS (1)
  1. METOPROLOL 1A FARMA (NGX)(METOPROLOL) UNKNOWN, 100MG [Suspect]
     Dosage: ORAL
     Route: 048

REACTIONS (2)
  - CARDIAC FIBRILLATION [None]
  - DRUG INEFFECTIVE [None]
